FAERS Safety Report 7871730-4 (Version None)
Quarter: 2011Q4

REPORT INFORMATION
  Report Type: 
  Country: None (occurrence: None)
  Receive Date: 20111029
  Receipt Date: 20110307
  Transmission Date: 20120403
  Serious: No
  Sender: FDA-Public Use
  Company Number: US-AMGEN-USASP2011012688

PATIENT
  Age: 32 Year
  Sex: Male

DRUGS (2)
  1. ENBREL [Suspect]
     Indication: PSORIATIC ARTHROPATHY
     Dosage: 50 MG, UNK
     Dates: start: 20100422
  2. ENBREL [Suspect]
     Indication: PSORIASIS

REACTIONS (6)
  - PSORIASIS [None]
  - PSORIATIC ARTHROPATHY [None]
  - SINUSITIS [None]
  - INJECTION SITE PAIN [None]
  - CHEST PAIN [None]
  - NODULE [None]
